FAERS Safety Report 13666250 (Version 1)
Quarter: 2017Q2

REPORT INFORMATION
  Report Type: Spontaneous
  Country: US (occurrence: US)
  Receive Date: 20170619
  Receipt Date: 20170619
  Transmission Date: 20170830
  Serious: No
  Sender: FDA-Public Use
  Company Number: US-ROCHE-689923

PATIENT
  Sex: Male

DRUGS (3)
  1. SELENIUM [Concomitant]
     Active Substance: SELENIUM
     Route: 065
  2. IRINOTECAN [Concomitant]
     Active Substance: IRINOTECAN
     Dosage: DRUG REPORTED: IRROTECAN
     Route: 065
  3. XELODA [Suspect]
     Active Substance: CAPECITABINE
     Indication: PRODUCT USED FOR UNKNOWN INDICATION
     Route: 065

REACTIONS (10)
  - Dehydration [Unknown]
  - Dyspnoea [Unknown]
  - Blood glucose decreased [Unknown]
  - Constipation [Unknown]
  - Nausea [Unknown]
  - Weight decreased [Unknown]
  - Sleep disorder [Unknown]
  - Vomiting [Unknown]
  - Diarrhoea [Unknown]
  - Headache [Unknown]
